FAERS Safety Report 7955320-0 (Version None)
Quarter: 2011Q4

REPORT INFORMATION
  Report Type: 
  Country: None (occurrence: None)
  Receive Date: 20111202
  Receipt Date: 20111121
  Transmission Date: 20120403
  Serious: Yes (Other)
  Sender: FDA-Public Use
  Company Number: KR-MYLANLABS-2011S1024303

PATIENT
  Age: 40 Year
  Sex: Female

DRUGS (3)
  1. HYDROCHLOROTHIAZIDE [Suspect]
     Indication: OEDEMA PERIPHERAL
     Route: 065
  2. GINEXIN [Concomitant]
     Route: 065
  3. SPIRONOLACTONE [Concomitant]
     Route: 065

REACTIONS (2)
  - CHOROIDAL EFFUSION [None]
  - MYOPIA [None]
